FAERS Safety Report 25274355 (Version 1)
Quarter: 2025Q2

REPORT INFORMATION
  Report Type: Spontaneous
  Country: US (occurrence: US)
  Receive Date: 20250506
  Receipt Date: 20250506
  Transmission Date: 20250717
  Serious: No
  Sender: TEVA
  Company Number: US-TEVA-VS-3228241

PATIENT
  Age: 61 Year
  Sex: Female

DRUGS (2)
  1. AUSTEDO [Suspect]
     Active Substance: DEUTETRABENAZINE
     Indication: Huntington^s disease
     Dosage: AUSTEDO 12 MG, 2 TABLETS BY MOUTH TWICE DAILY + AUSTEDO 6?MG, 1 TABLET BY MOUTH TWICE DAILY
     Route: 048
  2. AUSTEDO [Suspect]
     Active Substance: DEUTETRABENAZINE
     Indication: Huntington^s disease
     Dosage: AUSTEDO 12 MG, 2 TABLETS BY MOUTH TWICE DAILY + AUSTEDO 6?MG, 1 TABLET BY MOUTH TWICE DAILY
     Route: 048

REACTIONS (6)
  - Contusion [Unknown]
  - Off label use [Unknown]
  - Product use issue [Unknown]
  - Fall [Unknown]
  - Gait inability [Unknown]
  - Feeding disorder [Unknown]
